FAERS Safety Report 24373339 (Version 1)
Quarter: 2024Q3

REPORT INFORMATION
  Report Type: Spontaneous
  Country: US (occurrence: None)
  Receive Date: 20240926
  Receipt Date: 20240926
  Transmission Date: 20241017
  Serious: Yes (Other)
  Sender: Public
  Company Number: None

PATIENT
  Age: 8 Year
  Sex: Male
  Weight: 43.54 kg

DRUGS (8)
  1. GUANFACINE ER [Suspect]
     Active Substance: GUANFACINE HYDROCHLORIDE
  2. Flucotisane [Concomitant]
  3. citerizine [Concomitant]
  4. ALBUTEROL [Concomitant]
     Active Substance: ALBUTEROL
  5. CLOTRIMAZOLE [Concomitant]
     Active Substance: CLOTRIMAZOLE
  6. Amoxi clav mupriocin [Concomitant]
  7. IBUPROFEN [Concomitant]
     Active Substance: IBUPROFEN
  8. SALINE NASAL [Concomitant]
     Active Substance: SODIUM CHLORIDE

REACTIONS (1)
  - Flushing [None]

NARRATIVE: CASE EVENT DATE: 20240820
